FAERS Safety Report 8275868-1 (Version None)
Quarter: 2012Q2

REPORT INFORMATION
  Report Type: 
  Country: None (occurrence: None)
  Receive Date: 20120412
  Receipt Date: 20120403
  Transmission Date: 20120825
  Serious: Yes (Hospitalization)
  Sender: FDA-Public Use
  Company Number: BR-ASTRAZENECA-2011SE72175

PATIENT
  Age: 56 Year
  Sex: Female
  Weight: 64 kg

DRUGS (8)
  1. METFORMIN HCL [Concomitant]
     Route: 048
  2. ANLODIPINE [Concomitant]
     Route: 048
  3. BRILINTA [Suspect]
     Indication: THROMBOSIS PROPHYLAXIS
     Route: 048
     Dates: start: 20111123
  4. LOSARTAN POTASSIUM [Concomitant]
     Route: 048
  5. ZETIA [Concomitant]
     Route: 048
  6. ASPIRIN [Concomitant]
     Route: 048
  7. CRESTOR [Suspect]
     Indication: BLOOD CHOLESTEROL INCREASED
     Route: 048
  8. ATENOLOL [Suspect]
     Route: 048

REACTIONS (3)
  - MYOCARDIAL ISCHAEMIA [None]
  - INTENTIONAL DRUG MISUSE [None]
  - DIARRHOEA [None]
